FAERS Safety Report 6633359-5 (Version None)
Quarter: 2010Q1

REPORT INFORMATION
  Report Type: 
  Country: None (occurrence: None)
  Receive Date: 20100312
  Receipt Date: 20100305
  Transmission Date: 20100710
  Serious: Yes (Hospitalization)
  Sender: FDA-Public Use
  Company Number: JP-ABBOTT-09P-087-0614122-00

PATIENT
  Sex: Male
  Weight: 75 kg

DRUGS (24)
  1. HUMIRA [Suspect]
     Indication: COLITIS ULCERATIVE
     Route: 058
     Dates: start: 20090413, end: 20090816
  2. PREDONINE [Concomitant]
     Indication: COLITIS ULCERATIVE
     Route: 048
     Dates: start: 20080901, end: 20091208
  3. PENTASA [Concomitant]
     Indication: COLITIS ULCERATIVE
     Dates: start: 20080421, end: 20091213
  4. PENTASA [Concomitant]
     Dates: start: 20080715, end: 20090301
  5. IMURAN [Concomitant]
     Indication: COLITIS ULCERATIVE
     Route: 048
     Dates: start: 20090209, end: 20090216
  6. IMURAN [Concomitant]
     Dates: start: 20090216, end: 20090303
  7. IMURAN [Concomitant]
     Route: 048
     Dates: start: 20090303, end: 20100107
  8. BIOFERMIN [Concomitant]
     Indication: COLITIS ULCERATIVE
     Route: 048
     Dates: start: 20080722, end: 20090413
  9. BIOFERMIN [Concomitant]
     Route: 048
     Dates: start: 20090413, end: 20091224
  10. ADSORBIN [Concomitant]
     Indication: COLITIS ULCERATIVE
     Route: 048
     Dates: start: 20080722, end: 20091224
  11. RAMOSETRON HYDROCHLORIDE [Concomitant]
     Indication: COLITIS ULCERATIVE
     Route: 048
     Dates: start: 20090303, end: 20090330
  12. HALCION [Concomitant]
     Indication: INSOMNIA
     Route: 048
     Dates: start: 20090929, end: 20090929
  13. MYSLEE [Concomitant]
     Indication: INSOMNIA
     Route: 048
     Dates: start: 20090303, end: 20090901
  14. ENSURE [Concomitant]
     Indication: MEDICAL DIET
     Route: 048
     Dates: start: 20090929, end: 20090929
  15. FESIN [Concomitant]
     Indication: DRUG USE FOR UNKNOWN INDICATION
     Route: 042
     Dates: start: 20100218, end: 20100220
  16. FESIN [Concomitant]
     Route: 042
     Dates: start: 20100223, end: 20100227
  17. FESIN [Concomitant]
     Route: 042
     Dates: start: 20100204, end: 20100212
  18. FERRUM [Concomitant]
     Indication: DRUG USE FOR UNKNOWN INDICATION
     Route: 048
     Dates: start: 20100128, end: 20100130
  19. INTRALIPID 10% [Concomitant]
     Indication: MEDICAL DIET
     Route: 042
     Dates: start: 20091219, end: 20091223
  20. SOLDEM 3A [Concomitant]
     Indication: MEDICAL DIET
     Route: 042
     Dates: start: 20091227, end: 20091227
  21. SOLDEM 3A [Concomitant]
     Dates: start: 20091228, end: 20091228
  22. SOLDEM 3A [Concomitant]
     Route: 042
     Dates: start: 20091229, end: 20100104
  23. SOLDEM 3A [Concomitant]
     Route: 042
     Dates: start: 20100105, end: 20100108
  24. POTACOL R [Concomitant]
     Indication: MEDICAL DIET
     Route: 042
     Dates: start: 20091228, end: 20091228

REACTIONS (1)
  - COLITIS ULCERATIVE [None]
